FAERS Safety Report 7768434-5 (Version None)
Quarter: 2011Q3

REPORT INFORMATION
  Report Type: 
  Country: None (occurrence: None)
  Receive Date: 20110922
  Receipt Date: 20101102
  Transmission Date: 20111222
  Serious: No
  Sender: FDA-Public Use
  Company Number: US-ASTRAZENECA-2010SE52334

PATIENT
  Age: 28 Year
  Sex: Male
  Weight: 55.8 kg

DRUGS (4)
  1. SEROQUEL [Suspect]
     Indication: SLEEP DISORDER
     Route: 048
     Dates: start: 20101013, end: 20101015
  2. SEROQUEL [Suspect]
     Indication: BIPOLAR DISORDER
     Route: 048
     Dates: start: 20101013, end: 20101015
  3. NEURONTIN [Concomitant]
     Indication: NEURALGIA
  4. NEURONTIN [Concomitant]
     Indication: DEPRESSION

REACTIONS (5)
  - ABNORMAL BEHAVIOUR [None]
  - DIZZINESS [None]
  - DELUSIONAL PERCEPTION [None]
  - HALLUCINATIONS, MIXED [None]
  - PSYCHOMOTOR HYPERACTIVITY [None]
